FAERS Safety Report 12902037 (Version 6)
Quarter: 2021Q3

REPORT INFORMATION
  Report Type: Report from Study
  Country: AR (occurrence: AR)
  Receive Date: 20161102
  Receipt Date: 20210824
  Transmission Date: 20211014
  Serious: Yes (Other)
  Sender: FDA-Public Use
  Company Number: PHHY2015AR135436

PATIENT
  Age: 76 Year
  Sex: Female

DRUGS (4)
  1. AFINITOR [Suspect]
     Active Substance: EVEROLIMUS
     Indication: BREAST CANCER
     Dosage: 10 MG, QD
     Route: 048
     Dates: start: 20140101
  2. AFINITOR [Suspect]
     Active Substance: EVEROLIMUS
     Indication: BREAST CANCER METASTATIC
     Dosage: 10 MG, QD
     Route: 065
     Dates: start: 20150728, end: 201509
  3. AFINITOR [Suspect]
     Active Substance: EVEROLIMUS
     Dosage: 5 MG, QD
     Route: 048
  4. EXEMESTANE. [Concomitant]
     Active Substance: EXEMESTANE
     Indication: BLOOD CHOLESTEROL ABNORMAL
     Dosage: UNK
     Route: 065

REACTIONS (12)
  - Intervertebral disc disorder [Unknown]
  - Eating disorder [Recovered/Resolved]
  - Cataract [Recovered/Resolved]
  - Swelling [Recovered/Resolved]
  - Hypersensitivity [Unknown]
  - Rash pruritic [Not Recovered/Not Resolved]
  - Blindness [Recovered/Resolved]
  - Pruritus [Not Recovered/Not Resolved]
  - Infected varicose vein [Recovered/Resolved]
  - Dysgeusia [Unknown]
  - Malaise [Unknown]
  - Fixed eruption [Unknown]

NARRATIVE: CASE EVENT DATE: 201508
